FAERS Safety Report 10650098 (Version 2)
Quarter: 2014Q4

REPORT INFORMATION
  Report Type: Report from Study
  Country: US (occurrence: US)
  Receive Date: 20141212
  Receipt Date: 20141212
  Transmission Date: 20150529
  Serious: Yes (Hospitalization)
  Sender: FDA-Public Use
  Company Number: US-009507513-1312USA011940

PATIENT
  Age: 54 Year
  Sex: Female
  Weight: 76.92 kg

DRUGS (8)
  1. ACETAMINOPHEN. [Concomitant]
     Active Substance: ACETAMINOPHEN
     Indication: INTERVERTEBRAL DISC DEGENERATION
     Dosage: TOTAL DAILY DOSE 500 MG
     Route: 048
     Dates: start: 201309
  2. BLINDED THERAPY [Suspect]
     Active Substance: INVESTIGATIONAL PRODUCT
     Indication: TYPE 2 DIABETES MELLITUS
     Dosage: UNK
     Route: 048
     Dates: start: 20131217
  3. FENTANYL. [Suspect]
     Active Substance: FENTANYL
     Dosage: TOTAL DAILY DOSE: 75 MG, PRN
     Route: 048
     Dates: start: 20131204, end: 20131230
  4. OXYCODONE [Concomitant]
     Active Substance: OXYCODONE
     Indication: INTERVERTEBRAL DISC DEGENERATION
     Dosage: TOTAL DAILY DOSE 7.5 MG
     Route: 048
     Dates: start: 201309
  5. BLINDED MK-3102 [Suspect]
     Active Substance: OMARIGLIPTIN
     Indication: TYPE 2 DIABETES MELLITUS
     Dosage: UNK
     Route: 048
     Dates: start: 20131217
  6. FENTANYL. [Suspect]
     Active Substance: FENTANYL
     Indication: BACK PAIN
     Dosage: 50 MG, UNK
     Route: 061
     Dates: start: 201307, end: 20131203
  7. PROAIR HFA [Concomitant]
     Active Substance: ALBUTEROL SULFATE
     Indication: OBSTRUCTIVE AIRWAYS DISORDER
     Dosage: TOTAL DAILY DOSE 4 PUFF
     Route: 055
     Dates: start: 20131018
  8. METFORMIN [Concomitant]
     Active Substance: METFORMIN HYDROCHLORIDE
     Indication: TYPE 2 DIABETES MELLITUS
     Dosage: TOTAL DAILY DOSE 1500 MG, QD
     Route: 048
     Dates: start: 20120130

REACTIONS (2)
  - Dyspnoea [Recovered/Resolved]
  - Non-cardiac chest pain [Recovered/Resolved]

NARRATIVE: CASE EVENT DATE: 20131223
